FAERS Safety Report 7933956-0 (Version None)
Quarter: 2011Q4

REPORT INFORMATION
  Report Type: 
  Country: None (occurrence: None)
  Receive Date: 20111122
  Receipt Date: 20111114
  Transmission Date: 20120403
  Serious: Yes (Hospitalization)
  Sender: FDA-Public Use
  Company Number: CA-SANOFI-AVENTIS-2011SA075140

PATIENT
  Age: 63 Year
  Sex: Male

DRUGS (8)
  1. METFORMIN HCL [Suspect]
     Indication: TYPE 2 DIABETES MELLITUS
     Dates: end: 20110201
  2. NOVORAPID [Suspect]
     Indication: TYPE 2 DIABETES MELLITUS
  3. PLACEBO [Suspect]
     Indication: TYPE 2 DIABETES MELLITUS
     Dates: start: 20101103
  4. METFORMIN HCL [Suspect]
     Dates: start: 20110201
  5. NPH INSULIN [Suspect]
     Indication: TYPE 2 DIABETES MELLITUS
  6. LASIX [Suspect]
  7. BLINDED THERAPY [Suspect]
     Indication: TYPE 2 DIABETES MELLITUS
     Dates: start: 20101103
  8. METOLAZONE [Suspect]

REACTIONS (4)
  - RENAL FAILURE ACUTE [None]
  - BACK PAIN [None]
  - DYSPNOEA [None]
  - CARDIAC FAILURE CONGESTIVE [None]
